FAERS Safety Report 24404221 (Version 1)
Quarter: 2024Q4

REPORT INFORMATION
  Report Type: Spontaneous
  Country: US (occurrence: US)
  Receive Date: 20241007
  Receipt Date: 20241007
  Transmission Date: 20250115
  Serious: Yes (Other)
  Sender: HIKMA
  Company Number: US-HIKMA PHARMACEUTICALS USA INC.-US-H14001-24-08937

PATIENT
  Sex: Female

DRUGS (1)
  1. AMIKACIN SULFATE [Suspect]
     Active Substance: AMIKACIN SULFATE
     Indication: Mycobacterial infection
     Dosage: UNK
     Route: 065

REACTIONS (5)
  - Deafness [Unknown]
  - Drug ineffective [Unknown]
  - Chest pain [Unknown]
  - Bronchiectasis [Unknown]
  - Traumatic lung injury [Unknown]
